FAERS Safety Report 15691058 (Version 4)
Quarter: 2019Q1

REPORT INFORMATION
  Report Type: Spontaneous
  Country: US (occurrence: US)
  Receive Date: 20181205
  Receipt Date: 20190329
  Transmission Date: 20190417
  Serious: Yes (Hospitalization)
  Sender: FDA-Public Use
  Company Number: US-INTERCEPT-PMOCA2018001877

PATIENT

DRUGS (5)
  1. OCALIVA [Suspect]
     Active Substance: OBETICHOLIC ACID
     Indication: PRIMARY BILIARY CHOLANGITIS
     Dosage: 5 MG, BID
     Route: 065
     Dates: start: 201808, end: 201811
  2. PREDNISONE. [Concomitant]
     Active Substance: PREDNISONE
     Dosage: 20 MG, QD
     Route: 065
  3. AZATHIOPRINE. [Concomitant]
     Active Substance: AZATHIOPRINE
     Dosage: 50 MG, UNK
     Route: 065
  4. URSODIOL. [Concomitant]
     Active Substance: URSODIOL
     Dosage: 300 MG, TID
     Route: 065
  5. OCALIVA [Suspect]
     Active Substance: OBETICHOLIC ACID
     Dosage: 5 MG, BID
     Route: 048
     Dates: start: 20181031, end: 20181122

REACTIONS (12)
  - Hepatic failure [Unknown]
  - Fatigue [Unknown]
  - Constipation [Unknown]
  - Ammonia increased [Unknown]
  - Abdominal pain [Unknown]
  - Pruritus generalised [Unknown]
  - Product prescribing error [Recovered/Resolved]
  - Oesophageal varices haemorrhage [Unknown]
  - Oral pain [Unknown]
  - Dry eye [Unknown]
  - Haematemesis [Unknown]
  - Jaundice [Unknown]

NARRATIVE: CASE EVENT DATE: 20181120
